FAERS Safety Report 10171909 (Version 1)
Quarter: 2014Q2

REPORT INFORMATION
  Report Type: Spontaneous
  Country: CO (occurrence: CO)
  Receive Date: 20140515
  Receipt Date: 20140515
  Transmission Date: 20141212
  Serious: Yes (Other)
  Sender: FDA-Public Use
  Company Number: CO-PFIZER INC-2014130886

PATIENT
  Age: 60 Year
  Sex: Male

DRUGS (1)
  1. GENOTROPIN [Suspect]
     Indication: THERAPEUTIC PROCEDURE
     Route: 058

REACTIONS (1)
  - Pancreatic carcinoma [Unknown]
